FAERS Safety Report 7366536-9 (Version None)
Quarter: 2011Q1

REPORT INFORMATION
  Report Type: 
  Country: None (occurrence: None)
  Receive Date: 20110309
  Receipt Date: 20110223
  Transmission Date: 20110831
  Serious: Yes (Disabling, Other)
  Sender: FDA-Public Use
  Company Number: PHBS2007JP09645

PATIENT
  Age: 66 Year
  Sex: Male

DRUGS (1)
  1. VISUDYNE [Suspect]
     Indication: MACULAR DEGENERATION
     Dosage: 15 MG DAILY IV
     Route: 042
     Dates: start: 20061027, end: 20061027

REACTIONS (1)
  - RETINAL PIGMENT EPITHELIAL TEAR [None]
